FAERS Safety Report 6721546-7 (Version None)
Quarter: 2010Q2

REPORT INFORMATION
  Report Type: 
  Country: None (occurrence: None)
  Receive Date: 20100512
  Receipt Date: 20100510
  Transmission Date: 20101027
  Serious: Yes (Hospitalization)
  Sender: FDA-Public Use
  Company Number: US-ABBOTT-10P-163-0642076-00

PATIENT
  Sex: Male
  Weight: 79.904 kg

DRUGS (7)
  1. HUMIRA [Suspect]
     Indication: CROHN'S DISEASE
     Dates: start: 20080101, end: 20090901
  2. HUMIRA [Suspect]
     Dates: start: 20090901
  3. METHOTREXATE [Concomitant]
     Indication: CROHN'S DISEASE
  4. VITAMINS [Concomitant]
     Indication: VITAMIN SUPPLEMENTATION
  5. PROPRANOLOL [Concomitant]
     Indication: HYPERTENSION
  6. FOSAMAX [Concomitant]
     Indication: OSTEOPENIA
  7. CALCIUM [Concomitant]
     Indication: MINERAL SUPPLEMENTATION

REACTIONS (4)
  - ABDOMINAL PAIN [None]
  - ADHESION [None]
  - GALLBLADDER DISORDER [None]
  - INFLAMMATION [None]
